FAERS Safety Report 8822626 (Version 2)
Quarter: 2012Q4

REPORT INFORMATION
  Report Type: 
  Country: AT (occurrence: AT)
  Receive Date: 20121003
  Receipt Date: 20121022
  Transmission Date: 20130627
  Serious: Yes (Other)
  Sender: FDA-Public Use
  Company Number: AT-PFIZER INC-2012243573

PATIENT
  Age: 22 Year
  Sex: Male

DRUGS (2)
  1. GLADEM [Suspect]
     Indication: MOOD DISORDER DUE TO A GENERAL MEDICAL CONDITION
     Dosage: 50 mg, daily
     Route: 048
     Dates: start: 20120731, end: 20120804
  2. DEPAKINE [Concomitant]
     Dosage: 1500 mg daily

REACTIONS (1)
  - Grand mal convulsion [Recovered/Resolved]
